FAERS Safety Report 7217525-6 (Version None)
Quarter: 2011Q1

REPORT INFORMATION
  Report Type: 
  Country: None (occurrence: None)
  Receive Date: 20110110
  Receipt Date: 20110105
  Transmission Date: 20110831
  Serious: Yes (Hospitalization)
  Sender: FDA-Public Use
  Company Number: US-B.I. PHARMACEUTICALS,INC./RIDGEFIELD-2011-BP-00385BP

PATIENT
  Age: 77 Year
  Sex: Female

DRUGS (9)
  1. ONDANSETRON [Concomitant]
     Indication: PROPHYLAXIS OF NAUSEA AND VOMITING
     Route: 048
     Dates: start: 20100701
  2. CHEMOTHERAPY [Concomitant]
     Indication: PANCREATIC CARCINOMA
  3. LEXAPRO [Concomitant]
     Indication: DEPRESSION
     Route: 048
     Dates: start: 20080101
  4. PRADAXA [Suspect]
     Dosage: 300 MG
     Route: 048
     Dates: start: 20101201
  5. PENTASA [Concomitant]
     Indication: CROHN'S DISEASE
     Route: 048
     Dates: start: 20050101
  6. HYDROMORPHONE HCL [Concomitant]
     Indication: PAIN
     Route: 048
     Dates: start: 20100701
  7. ALENDRONATE SODIUM [Concomitant]
     Indication: BONE DENSITY DECREASED
     Route: 048
     Dates: start: 20090101
  8. OXYCONTIN [Concomitant]
     Indication: PAIN
     Route: 048
     Dates: start: 20101201
  9. MIRTAZAPINE [Concomitant]
     Indication: SLEEP DISORDER
     Route: 048
     Dates: start: 20100101

REACTIONS (1)
  - HAEMATURIA [None]
